FAERS Safety Report 24590440 (Version 1)
Quarter: 2024Q4

REPORT INFORMATION
  Report Type: Spontaneous
  Country: CA (occurrence: CA)
  Receive Date: 20241107
  Receipt Date: 20241107
  Transmission Date: 20250114
  Serious: Yes (Other)
  Sender: COVIS PHARMA GMBH
  Company Number: CA-Covis Pharma Europe B.V.-2024COV01291

PATIENT
  Sex: Female

DRUGS (1)
  1. OMNARIS [Suspect]
     Active Substance: CICLESONIDE
     Route: 045

REACTIONS (11)
  - Swelling face [Unknown]
  - Visual impairment [Unknown]
  - Ocular discomfort [Unknown]
  - Pharyngeal swelling [Unknown]
  - Dysphonia [Unknown]
  - Malaise [Unknown]
  - Eye pain [Unknown]
  - Nasal oedema [Unknown]
  - Lip pruritus [Unknown]
  - Urticaria [Unknown]
  - Nasopharyngitis [Unknown]
